FAERS Safety Report 7541988-X (Version None)
Quarter: 2011Q2

REPORT INFORMATION
  Report Type: 
  Country: None (occurrence: None)
  Receive Date: 20110613
  Receipt Date: 20110608
  Transmission Date: 20111010
  Serious: Yes (Hospitalization, Other)
  Sender: FDA-Public Use
  Company Number: CH-BRISTOL-MYERS SQUIBB COMPANY-15728017

PATIENT
  Age: 56 Year
  Sex: Female

DRUGS (3)
  1. ABILIFY [Suspect]
     Route: 048
  2. ZYPREXA [Suspect]
  3. PAROXETINE HCL [Suspect]
     Dosage: 1DF:2 TABS; 20MG TABS TAKEN IN THE MORNING

REACTIONS (3)
  - GRAND MAL CONVULSION [None]
  - SYNCOPE [None]
  - LOSS OF CONSCIOUSNESS [None]
